FAERS Safety Report 10292923 (Version 1)
Quarter: 2014Q3

REPORT INFORMATION
  Report Type: Spontaneous
  Country: US (occurrence: US)
  Receive Date: 20140710
  Receipt Date: 20140710
  Transmission Date: 20150326
  Serious: No
  Sender: FDA-Public Use
  Company Number: US-SA-2013SA121971

PATIENT
  Sex: Male

DRUGS (2)
  1. LEVEMIR [Suspect]
     Active Substance: INSULIN DETEMIR
     Route: 065
  2. AMARYL [Suspect]
     Active Substance: GLIMEPIRIDE
     Route: 065

REACTIONS (1)
  - Blood glucose increased [Not Recovered/Not Resolved]
